FAERS Safety Report 4749117-2 (Version None)
Quarter: 2005Q3

REPORT INFORMATION
  Report Type: 
  Country: None (occurrence: None)
  Receive Date: 20050817
  Receipt Date: 20050808
  Transmission Date: 20060218
  Serious: Yes (Death)
  Sender: FDA-Public Use
  Company Number: EM2005-0376

PATIENT
  Age: 45 Year
  Sex: Male

DRUGS (7)
  1. MACROLIN [Suspect]
     Indication: HIV INFECTION
     Dosage: 4.5 MIU; SUCEUTAN.
     Route: 058
     Dates: start: 20040114, end: 20040118
  2. MACROLIN [Suspect]
     Indication: HIV INFECTION
     Dosage: 4.5 MIU; SUCEUTAN.
     Route: 058
     Dates: start: 20040524, end: 20040529
  3. DIDANOSINE [Concomitant]
  4. ABACAVIR  (ABACAVIR) [Concomitant]
  5. RITONAVIR  (RITONAVIR) [Concomitant]
  6. TENOFOVIR (TENOFOVIR) [Concomitant]
  7. TIPRANAVIR [Concomitant]

REACTIONS (3)
  - ACQUIRED IMMUNODEFICIENCY SYNDROME [None]
  - HIV INFECTION [None]
  - THERAPY NON-RESPONDER [None]
